FAERS Safety Report 4418150-2 (Version None)
Quarter: 2004Q3

REPORT INFORMATION
  Report Type: 
  Country: None (occurrence: None)
  Receive Date: 20040809
  Receipt Date: 20031205
  Transmission Date: 20050211
  Serious: No
  Sender: FDA-Public Use
  Company Number: US-GLAXOSMITHKLINE-A0442169A

PATIENT
  Age: 58 Year
  Sex: Male

DRUGS (4)
  1. PAXIL [Suspect]
     Indication: DEPRESSION
     Dosage: 25MG PER DAY
     Route: 048
     Dates: start: 20030601, end: 20040414
  2. CARDURA [Concomitant]
  3. CALCIUM [Concomitant]
     Dosage: 600MG UNKNOWN
     Route: 065
  4. ACYCLOVIR [Concomitant]
     Route: 065

REACTIONS (5)
  - ASTHENIA [None]
  - DIZZINESS [None]
  - LETHARGY [None]
  - SOMNOLENCE [None]
  - YAWNING [None]
